FAERS Safety Report 21384970 (Version 1)
Quarter: 2022Q3

REPORT INFORMATION
  Report Type: Spontaneous
  Country: US (occurrence: US)
  Receive Date: 20220928
  Receipt Date: 20220928
  Transmission Date: 20221026
  Serious: No
  Sender: FDA-Public Use
  Company Number: US-AVEO ONCOLOGY-2022-AVEO-US000384

PATIENT

DRUGS (15)
  1. FOTIVDA [Suspect]
     Active Substance: TIVOZANIB HYDROCHLORIDE
     Indication: Renal cell carcinoma
     Dosage: 1.34 MG, DAILY FOR 21 DAYS WITH 7 DAYS OFF (28-DAY CYCLE)
     Route: 048
     Dates: start: 20220517, end: 202208
  2. ARGININE [Concomitant]
     Active Substance: ARGININE
  3. ASPERCREME NOS [Concomitant]
     Active Substance: MENTHOL\TROLAMINE SALICYLATE
  4. BENADRYL [Concomitant]
     Active Substance: DIPHENHYDRAMINE HYDROCHLORIDE
  5. ESZOPICLONE [Concomitant]
     Active Substance: ESZOPICLONE
  6. GABAPENTIN [Concomitant]
     Active Substance: GABAPENTIN
  7. LAMOTRIGINE [Concomitant]
     Active Substance: LAMOTRIGINE
  8. LOSARTAN [Concomitant]
     Active Substance: LOSARTAN
  9. OXYCODONE [Concomitant]
     Active Substance: OXYCODONE
  10. PRAVASTATIN [Concomitant]
     Active Substance: PRAVASTATIN
  11. VITAMIN D3 [Concomitant]
     Active Substance: CHOLECALCIFEROL
  12. NAPROXEN [Concomitant]
     Active Substance: NAPROXEN
  13. Tab-A-Vite [Concomitant]
  14. ACETAMINOPHEN [Concomitant]
     Active Substance: ACETAMINOPHEN
  15. ZYRTEC [Concomitant]
     Active Substance: CETIRIZINE HYDROCHLORIDE

REACTIONS (1)
  - Disease progression [Unknown]
